FAERS Safety Report 5649969-8 (Version None)
Quarter: 2008Q1

REPORT INFORMATION
  Report Type: 
  Country: None (occurrence: None)
  Receive Date: 20080303
  Receipt Date: 20080124
  Transmission Date: 20080703
  Serious: Yes (Hospitalization)
  Sender: FDA-Public Use
  Company Number: BBAXTER01222008

PATIENT
  Sex: Female

DRUGS (1)
  1. CLEARSKIN CORRECT AND FADE PEEL [Suspect]

REACTIONS (2)
  - ERYTHEMA [None]
  - RASH MACULAR [None]
